FAERS Safety Report 11371725 (Version 1)
Quarter: 2015Q3

REPORT INFORMATION
  Report Type: Other
  Country: DK (occurrence: DK)
  Receive Date: 20150812
  Receipt Date: 20150812
  Transmission Date: 20151125
  Serious: Yes (Other)
  Sender: FDA-Public Use
  Company Number: DK-MYLANLABS-2015M1025917

PATIENT

DRUGS (1)
  1. CLOPIDOGREL HYDROBROMIDE [Suspect]
     Active Substance: CLOPIDOGREL HYDROBROMIDE
     Indication: THROMBOSIS PROPHYLAXIS
     Dosage: 75 MG, UNK (DOSIS: 75 MG GANGE 1, STYRKE: 75 MAG)
     Route: 048
     Dates: start: 20141006, end: 20150224

REACTIONS (4)
  - Muscle atrophy [Recovered/Resolved]
  - Fatigue [Recovered/Resolved]
  - Gait disturbance [Recovered/Resolved]
  - Asthenia [Recovered/Resolved]

NARRATIVE: CASE EVENT DATE: 20141020
